FAERS Safety Report 19972155 (Version 2)
Quarter: 2021Q4

REPORT INFORMATION
  Report Type: Spontaneous
  Country: PL (occurrence: PL)
  Receive Date: 20211019
  Receipt Date: 20211021
  Transmission Date: 20220303
  Serious: Yes (Death)
  Sender: FDA-Public Use
  Company Number: PL-FRESENIUS KABI-FK202107020

PATIENT
  Sex: Male

DRUGS (4)
  1. ROCURONIUM [Suspect]
     Active Substance: ROCURONIUM BROMIDE
     Indication: Product used for unknown indication
     Dosage: UNK
     Route: 065
  2. DIAZEPAM [Suspect]
     Active Substance: DIAZEPAM
     Indication: Product used for unknown indication
     Dosage: UNK
     Route: 065
  3. MORPHINE [Suspect]
     Active Substance: MORPHINE
     Indication: Product used for unknown indication
     Dosage: UNK
     Route: 065
  4. ETOMIDATE [Suspect]
     Active Substance: ETOMIDATE
     Indication: Product used for unknown indication
     Dosage: UNK
     Route: 065

REACTIONS (4)
  - Suicide attempt [Fatal]
  - Toxicity to various agents [Fatal]
  - Hyperaemia [Fatal]
  - Oedema [Fatal]
